FAERS Safety Report 17817456 (Version 1)
Quarter: 2020Q2

REPORT INFORMATION
  Report Type: Spontaneous
  Country: HR (occurrence: HR)
  Receive Date: 20200522
  Receipt Date: 20200522
  Transmission Date: 20200714
  Serious: Yes (Other)
  Sender: FDA-Public Use
  Company Number: HR-TEVA-2020-HR-1237701

PATIENT
  Age: 12 Year
  Sex: Female

DRUGS (3)
  1. RINOLAN [Suspect]
     Active Substance: LORATADINE
     Dosage: 10 MG, 30 TABLETS PER PACK
     Route: 048
     Dates: start: 20200108, end: 20200108
  2. CONTROLOC [Suspect]
     Active Substance: PANTOPRAZOLE SODIUM
     Dosage: 2 CONTROL
     Route: 048
     Dates: start: 20200108, end: 20200108
  3. CAFFETIN [AMINOPHENAZONE\CAFFEINE\CODEINE \PHENACETIN] [Suspect]
     Active Substance: AMINOPHENAZONE\CAFFEINE\CODEINE \PHENACETIN
     Dosage: 5 CAFFETINA
     Route: 048
     Dates: start: 20200108, end: 20200108

REACTIONS (2)
  - Suicide attempt [Unknown]
  - Intentional overdose [Unknown]

NARRATIVE: CASE EVENT DATE: 20200108
